FAERS Safety Report 7412637-6 (Version None)
Quarter: 2011Q2

REPORT INFORMATION
  Report Type: 
  Country: None (occurrence: None)
  Receive Date: 20110413
  Receipt Date: 20110411
  Transmission Date: 20111010
  Serious: No
  Sender: FDA-Public Use
  Company Number: US-PFIZER INC-2011018768

PATIENT
  Sex: Male

DRUGS (1)
  1. CHANTIX [Suspect]
     Indication: SMOKING CESSATION THERAPY
     Dosage: UNK
     Dates: start: 20070130, end: 20071201

REACTIONS (4)
  - ABNORMAL BEHAVIOUR [None]
  - MENTAL DISORDER [None]
  - EMOTIONAL DISTRESS [None]
  - AGGRESSION [None]
